FAERS Safety Report 8584709-4 (Version None)
Quarter: 2012Q3

REPORT INFORMATION
  Report Type: 
  Country: None (occurrence: None)
  Receive Date: 20120810
  Receipt Date: 20120731
  Transmission Date: 20120928
  Serious: Yes (Hospitalization)
  Sender: FDA-Public Use
  Company Number: US-BAYER-2012-078821

PATIENT
  Age: 37 Year
  Sex: Female
  Weight: 72.8 kg

DRUGS (20)
  1. LEXAPRO [Concomitant]
     Dosage: 20 MG, UNK
     Route: 048
     Dates: start: 20090606, end: 20090812
  2. ELAVIL [Concomitant]
  3. SYMBICORT [Concomitant]
     Route: 045
  4. CLINDAMYCIN [Concomitant]
     Dosage: UNK
     Dates: start: 20090829
  5. ABILIFY [Concomitant]
     Dosage: 30 MG, UNK
     Route: 048
     Dates: start: 20090606, end: 20090707
  6. ALBUTEROL [Concomitant]
     Route: 045
  7. KLONOPIN [Concomitant]
  8. DROSPIRENONE AND ETHINYL ESTRADIOL [Suspect]
  9. SEROQUEL [Concomitant]
     Dosage: 200 MG, UNK
     Route: 048
     Dates: start: 20090606, end: 20090802
  10. FLUCONAZOLE [Concomitant]
     Dosage: 150 MG, UNK
     Route: 048
     Dates: start: 20090715
  11. HYDROCODONE BITARTRATE AND ACETAMINOPHEN [Concomitant]
     Dosage: 5-500 MG, UNK
     Route: 048
     Dates: start: 20090824
  12. ZYPREXA [Concomitant]
  13. METRONIDAZOLE [Concomitant]
     Dosage: 500 MG, UNK
     Route: 048
     Dates: start: 20090715
  14. PENICILLIN [Concomitant]
     Dosage: UNK
     Dates: start: 20090821
  15. NAPROXEN [Concomitant]
     Dosage: UNK
     Dates: start: 20090822
  16. YAZ [Suspect]
     Indication: DYSMENORRHOEA
  17. YASMIN [Suspect]
  18. CLONAZEPAM [Concomitant]
     Dosage: 1 MG, UNK
     Route: 048
     Dates: start: 20090807
  19. AMITRIPTYLINE HCL [Concomitant]
     Dosage: 150 MG, UNK
     Route: 048
     Dates: start: 20090707
  20. SULFAMETHOXAZOLE AND TRIMETHOPRIM [Concomitant]
     Dosage: UNK
     Route: 048
     Dates: start: 20090907

REACTIONS (2)
  - PULMONARY EMBOLISM [None]
  - PULMONARY INFARCTION [None]
